FAERS Safety Report 8851108 (Version 1)
Quarter: 2012Q4

REPORT INFORMATION
  Report Type: 
  Country: BR (occurrence: BR)
  Receive Date: 20121019
  Receipt Date: 20121019
  Transmission Date: 20130627
  Serious: Yes (Hospitalization)
  Sender: FDA-Public Use
  Company Number: BR-SANOFI-AVENTIS-2012SA074826

PATIENT
  Age: 81 Year
  Sex: Female

DRUGS (2)
  1. LANTUS [Suspect]
     Indication: TYPE 2 DIABETES MELLITUS
     Dosage: 56 IU morning
40IU evening
     Route: 058
     Dates: start: 2007
  2. CLIKSTAR [Suspect]
     Indication: DEVICE THERAPY
     Dates: start: 2007

REACTIONS (1)
  - Limb injury [Unknown]
